FAERS Safety Report 17004005 (Version 1)
Quarter: 2019Q4

REPORT INFORMATION
  Report Type: Spontaneous
  Country: US (occurrence: US)
  Receive Date: 20191107
  Receipt Date: 20191107
  Transmission Date: 20200122
  Serious: Yes (Hospitalization, Other)
  Sender: FDA-Public Use
  Company Number: US-SA-2019SA302000

PATIENT
  Age: 78 Year
  Sex: Male

DRUGS (1)
  1. BCG FOR IMMUNOTHERAPY [Suspect]
     Active Substance: BACILLUS CALMETTE-GUERIN ANTIGEN, UNSPECIFIED SUBSTRAIN
     Indication: TRANSITIONAL CELL CARCINOMA
     Dosage: UNK
     Route: 043

REACTIONS (8)
  - Disseminated Bacillus Calmette-Guerin infection [Unknown]
  - Mycobacterium tuberculosis complex test positive [Recovered/Resolved]
  - Tachypnoea [Unknown]
  - Hypotension [Unknown]
  - Chills [Unknown]
  - Pyrexia [Not Recovered/Not Resolved]
  - Pneumonia [Not Recovered/Not Resolved]
  - Mental disorder [Unknown]
